FAERS Safety Report 5567501-4 (Version None)
Quarter: 2007Q4

REPORT INFORMATION
  Report Type: 
  Country: None (occurrence: None)
  Receive Date: 20071219
  Receipt Date: 20071207
  Transmission Date: 20080405
  Serious: Yes (Other)
  Sender: FDA-Public Use
  Company Number: BR-PFIZER INC-2007096537

PATIENT
  Sex: Female

DRUGS (4)
  1. XALATAN [Suspect]
     Indication: GLAUCOMA
     Route: 047
     Dates: start: 19970201, end: 20010101
  2. XALATAN [Suspect]
     Dosage: DAILY DOSE:1DROP
     Route: 047
     Dates: start: 20020101, end: 20060101
  3. XALATAN [Suspect]
  4. LUMIGAN [Suspect]

REACTIONS (1)
  - EYE INFECTION [None]
